FAERS Safety Report 10579534 (Version 2)
Quarter: 2014Q4

REPORT INFORMATION
  Report Type: Spontaneous
  Country: US (occurrence: US)
  Receive Date: 20141112
  Receipt Date: 20141203
  Transmission Date: 20150529
  Serious: No
  Sender: FDA-Public Use
  Company Number: US-GLAXOSMITHKLINE-US2014GSK015443

PATIENT
  Age: 22 Year
  Sex: Male

DRUGS (3)
  1. FEXOFENADINE [Concomitant]
     Active Substance: FEXOFENADINE\FEXOFENADINE HYDROCHLORIDE
  2. VERAMYST [Suspect]
     Active Substance: FLUTICASONE FUROATE
     Indication: MULTIPLE ALLERGIES
     Dosage: 1 DF (1 SPRAY PER NOSTRIL), QD
     Route: 045
     Dates: end: 20140928
  3. ALLERGY SHOT [Concomitant]
     Active Substance: UNSPECIFIED INGREDIENT

REACTIONS (5)
  - Malaise [Recovering/Resolving]
  - Vomiting [Recovering/Resolving]
  - Paranasal sinus hypersecretion [Recovering/Resolving]
  - Headache [Recovering/Resolving]
  - Product quality issue [Unknown]

NARRATIVE: CASE EVENT DATE: 20140903
